FAERS Safety Report 8765365 (Version 3)
Quarter: 2012Q4

REPORT INFORMATION
  Report Type: 
  Country: GB (occurrence: GB)
  Receive Date: 20120831
  Receipt Date: 20120920
  Transmission Date: 20130627
  Serious: Yes (Death, Other)
  Sender: FDA-Public Use
  Company Number: GB-JNJFOC-20120813489

PATIENT
  Age: 1 Year
  Sex: Male

DRUGS (4)
  1. IBUPROFEN [Suspect]
     Indication: VARICELLA
     Route: 048
  2. PARACETAMOL [Suspect]
     Route: 048
  3. PARACETAMOL [Suspect]
     Indication: VARICELLA
     Route: 048
  4. UNSPECIFIED INGREDIENT [Suspect]
     Indication: VARICELLA
     Route: 065

REACTIONS (6)
  - Pneumonia [Fatal]
  - Dyspnoea [Not Recovered/Not Resolved]
  - Pyrexia [Not Recovered/Not Resolved]
  - Pain [Not Recovered/Not Resolved]
  - Rash [Not Recovered/Not Resolved]
  - Tremor [Not Recovered/Not Resolved]
